FAERS Safety Report 12995228 (Version 2)
Quarter: 2016Q4

REPORT INFORMATION
  Report Type: Spontaneous
  Country: DE (occurrence: DE)
  Receive Date: 20161202
  Receipt Date: 20161215
  Transmission Date: 20170207
  Serious: Yes (Death, Congenital Anomaly, Other)
  Sender: FDA-Public Use
  Company Number: PHHY2016DE164101

PATIENT
  Age: 1 Day
  Sex: Male
  Weight: 1.16 kg

DRUGS (4)
  1. DAFIRO HCT [Suspect]
     Active Substance: AMLODIPINE\HYDROCHLOROTHIAZIDE\VALSARTAN
     Indication: HYPERTENSION
     Dosage: UNK
     Route: 064
     Dates: start: 20151226, end: 20160620
  2. ADALAT [Concomitant]
     Active Substance: NIFEDIPINE
     Indication: PRODUCT USED FOR UNKNOWN INDICATION
     Dosage: UNK
     Route: 064
     Dates: start: 20160621, end: 20160715
  3. DAFIRO HCT [Suspect]
     Active Substance: AMLODIPINE\HYDROCHLOROTHIAZIDE\VALSARTAN
     Indication: FOETAL EXPOSURE DURING PREGNANCY
  4. PRESINOL [Concomitant]
     Active Substance: METHYLDOPA
     Indication: PRODUCT USED FOR UNKNOWN INDICATION
     Dosage: UNK
     Route: 064
     Dates: start: 20160621, end: 20160715

REACTIONS (6)
  - Premature baby [Not Recovered/Not Resolved]
  - Death neonatal [Fatal]
  - Neonatal respiratory failure [Fatal]
  - Pulmonary hypoplasia [Fatal]
  - Microcephaly [Not Recovered/Not Resolved]
  - Subarachnoid haemorrhage neonatal [Not Recovered/Not Resolved]

NARRATIVE: CASE EVENT DATE: 20160715
